FAERS Safety Report 7288845-4 (Version None)
Quarter: 2011Q1

REPORT INFORMATION
  Report Type: 
  Country: None (occurrence: None)
  Receive Date: 20110211
  Receipt Date: 20110202
  Transmission Date: 20110831
  Serious: Yes (Other)
  Sender: FDA-Public Use
  Company Number: DE-JNJFOC-20091001993

PATIENT
  Age: 38 Year
  Sex: Male
  Weight: 103 kg

DRUGS (10)
  1. METHOTREXATE [Concomitant]
     Indication: POLYARTHRITIS
     Route: 030
  2. REMICADE [Suspect]
     Indication: POLYARTHRITIS
     Dosage: EVERY 4-6 WEEKS
     Route: 042
  3. REMICADE [Suspect]
     Dosage: DOSE DECREASED
     Route: 042
  4. SULFASALAZINE [Concomitant]
     Indication: POLYARTHRITIS
     Route: 048
  5. PANTOPRAZOL [Concomitant]
     Indication: GASTROINTESTINAL DISORDER THERAPY
     Route: 048
  6. PREDNISOLONE [Concomitant]
     Indication: POLYARTHRITIS
     Route: 048
  7. FOLIC ACID [Concomitant]
     Indication: POLYARTHRITIS
  8. REMICADE [Suspect]
     Dosage: DOSE DECREASED
     Route: 042
  9. REMICADE [Suspect]
     Dosage: EVERY 4-6 WEEKS
     Route: 042
  10. INDOMETACIN [Concomitant]
     Indication: POLYARTHRITIS
     Route: 048

REACTIONS (1)
  - TESTICULAR SEMINOMA (PURE) [None]
